FAERS Safety Report 5812952-3 (Version None)
Quarter: 2008Q3

REPORT INFORMATION
  Report Type: 
  Country: None (occurrence: None)
  Receive Date: 20080717
  Receipt Date: 20070815
  Transmission Date: 20090109
  Serious: No
  Sender: FDA-Public Use
  Company Number: A0670099A

PATIENT
  Age: 40 Year
  Sex: Female

DRUGS (2)
  1. NICORETTE [Suspect]
     Dates: start: 20070810, end: 20070810
  2. COMMIT [Suspect]

REACTIONS (4)
  - ABDOMINAL PAIN UPPER [None]
  - DRUG INEFFECTIVE [None]
  - NICOTINE DEPENDENCE [None]
  - OROPHARYNGEAL PAIN [None]
